FAERS Safety Report 13395984 (Version 1)
Quarter: 2017Q2

REPORT INFORMATION
  Report Type: Spontaneous
  Country: US (occurrence: US)
  Receive Date: 20170403
  Receipt Date: 20170403
  Transmission Date: 20170830
  Serious: Yes (Death)
  Sender: FDA-Public Use
  Company Number: None

PATIENT
  Age: 72 Year
  Sex: Male
  Weight: 101.69 kg

DRUGS (16)
  1. FERREX [Concomitant]
     Active Substance: FERRIC POLYSACCHARIDE COMPLEX
  2. FUROSEMIDE. [Concomitant]
     Active Substance: FUROSEMIDE
  3. TRAMADOL HCL [Concomitant]
     Active Substance: TRAMADOL HYDROCHLORIDE
  4. AMLODIPINE BESYLATE. [Concomitant]
     Active Substance: AMLODIPINE BESYLATE
  5. PRAZOSIN. [Concomitant]
     Active Substance: PRAZOSIN
  6. GAMBRO POLYFLUX [Suspect]
     Active Substance: DEVICE
     Indication: END STAGE RENAL DISEASE
     Dosage: ?          QUANTITY:CLO;?
     Dates: start: 20130605, end: 20130608
  7. METOLAZONE. [Concomitant]
     Active Substance: METOLAZONE
  8. ZOLPIDEM TARTRATE. [Concomitant]
     Active Substance: ZOLPIDEM TARTRATE
  9. SODIUM BICARB [Concomitant]
     Active Substance: SODIUM BICARBONATE
  10. DEXTROSE. [Concomitant]
     Active Substance: DEXTROSE
  11. CLONIDINE HCL [Concomitant]
     Active Substance: CLONIDINE HYDROCHLORIDE
  12. HYDROCODON-ACETAMINOPHEN [Concomitant]
     Active Substance: ACETAMINOPHEN\HYDROCODONE
  13. ATORVASTATIN [Concomitant]
     Active Substance: ATORVASTATIN
  14. INSULIN U-100 [Concomitant]
     Active Substance: INSULIN NOS
  15. RENVELA [Suspect]
     Active Substance: SEVELAMER CARBONATE
     Indication: END STAGE RENAL DISEASE
     Dosage: MIXED WITH WATER AND DRANK
     Dates: start: 201306
  16. NU-IRON [Concomitant]
     Active Substance: FERRIC POLYSACCHARIDE COMPLEX

REACTIONS (2)
  - Dyskinesia [None]
  - Sudden cardiac death [None]

NARRATIVE: CASE EVENT DATE: 20130608
